FAERS Safety Report 17559847 (Version 1)
Quarter: 2020Q1

REPORT INFORMATION
  Report Type: Spontaneous
  Country: AT (occurrence: AT)
  Receive Date: 20200319
  Receipt Date: 20200319
  Transmission Date: 20200409
  Serious: Yes (Life-Threatening, Other)
  Sender: FDA-Public Use
  Company Number: AT-NOVOPROD-718037

PATIENT
  Sex: Male

DRUGS (1)
  1. NOVOMIX 30 PENFILL [Suspect]
     Active Substance: INSULIN ASPART
     Indication: DIABETES MELLITUS
     Dosage: UNK
     Route: 065

REACTIONS (5)
  - Coma [Unknown]
  - Liquid product physical issue [Unknown]
  - Feeling abnormal [Unknown]
  - Injection site pain [Unknown]
  - Dizziness [Unknown]
